FAERS Safety Report 5289952-8 (Version None)
Quarter: 2007Q1

REPORT INFORMATION
  Report Type: 
  Country: None (occurrence: None)
  Receive Date: 20070116
  Receipt Date: 20060217
  Transmission Date: 20070707
  Serious: Yes (Other)
  Sender: FDA-Public Use
  Company Number: HQ7715627FEB2001

PATIENT
  Age: 63 Year
  Sex: Female
  Weight: 43.58 kg

DRUGS (3)
  1. PREMPRO [Suspect]
  2. CYCRIN [Suspect]
  3. PREMARIN [Suspect]
     Indication: OESTROGEN REPLACEMENT THERAPY
     Dosage: 0.625 MG, ORAL
     Route: 048
     Dates: start: 19850101, end: 20010501

REACTIONS (1)
  - BREAST CANCER FEMALE [None]
